FAERS Safety Report 11124901 (Version 5)
Quarter: 2015Q3

REPORT INFORMATION
  Report Type: Report from Study
  Country: US (occurrence: US)
  Receive Date: 20150520
  Receipt Date: 20150708
  Transmission Date: 20151125
  Serious: Yes (Other)
  Sender: FDA-Public Use
  Company Number: US-BAYER-2015-180204

PATIENT
  Age: 78 Year
  Sex: Male

DRUGS (2)
  1. STIVARGA [Suspect]
     Active Substance: REGORAFENIB
     Indication: NEUROENDOCRINE CARCINOMA
     Dosage: 40 MG, 3 TABLETS, DAILY
     Route: 048
     Dates: start: 20150523, end: 20150620
  2. STIVARGA [Suspect]
     Active Substance: REGORAFENIB
     Indication: COLON CANCER
     Dosage: DOSE REGIMNE: 4 X 40 MG
     Route: 048
     Dates: start: 20150418, end: 20150504

REACTIONS (14)
  - Alanine aminotransferase increased [Not Recovered/Not Resolved]
  - Myalgia [None]
  - Fatigue [Not Recovered/Not Resolved]
  - Neuroendocrine carcinoma [Not Recovered/Not Resolved]
  - Blood magnesium decreased [Not Recovered/Not Resolved]
  - Diarrhoea [Recovered/Resolved]
  - Rash macular [Recovering/Resolving]
  - Glossodynia [Not Recovered/Not Resolved]
  - Blood bilirubin increased [Not Recovered/Not Resolved]
  - Dysphonia [Not Recovered/Not Resolved]
  - Diarrhoea [Recovered/Resolved]
  - Colon cancer [Not Recovered/Not Resolved]
  - Blood pressure increased [Not Recovered/Not Resolved]
  - Asthenia [None]

NARRATIVE: CASE EVENT DATE: 20150418
